FAERS Safety Report 6071447-5 (Version None)
Quarter: 2009Q1

REPORT INFORMATION
  Report Type: 
  Country: None (occurrence: None)
  Receive Date: 20090203
  Receipt Date: 20081124
  Transmission Date: 20090719
  Serious: Yes (Hospitalization)
  Sender: FDA-Public Use
  Company Number: GXBR2008US02223

PATIENT
  Age: 53 Year
  Sex: Female
  Weight: 74.8 kg

DRUGS (2)
  1. METOPROLOL SUCCINATE [Suspect]
     Indication: HYPERTENSION
     Dosage: 50 MG, QD, ORAL
     Route: 048
     Dates: start: 20081029, end: 20081030
  2. LISINOPRIL [Concomitant]

REACTIONS (5)
  - BLOOD PRESSURE DECREASED [None]
  - BLOOD PRESSURE INCREASED [None]
  - DIZZINESS [None]
  - NAUSEA [None]
  - SYNCOPE [None]
